FAERS Safety Report 6333453-2 (Version None)
Quarter: 2009Q3

REPORT INFORMATION
  Report Type: 
  Country: None (occurrence: None)
  Receive Date: 20090828
  Receipt Date: 20090825
  Transmission Date: 20100115
  Serious: Yes (Death, Hospitalization, Other)
  Sender: FDA-Public Use
  Company Number: PHEH2009US09728

PATIENT
  Sex: Female

DRUGS (7)
  1. GLEEVEC [Suspect]
     Indication: CHRONIC MYELOID LEUKAEMIA
     Dosage: 400 MG, QD
     Route: 048
     Dates: start: 20090512, end: 20090601
  2. GLEEVEC [Suspect]
     Dosage: UNK
  3. HYDROCHLOROTHIAZIDE [Concomitant]
  4. COMBIVENT                               /GFR/ [Concomitant]
  5. SYMBICORT [Concomitant]
  6. SPIRIVA [Concomitant]
  7. DEMEROL [Concomitant]
     Indication: PAIN
     Dosage: UNK
     Dates: start: 20090601

REACTIONS (2)
  - CHRONIC OBSTRUCTIVE PULMONARY DISEASE [None]
  - LYMPHOPROLIFERATIVE DISORDER [None]
